FAERS Safety Report 4950862-4 (Version None)
Quarter: 2006Q1

REPORT INFORMATION
  Report Type: 
  Country: None (occurrence: None)
  Receive Date: 20060322
  Receipt Date: 20021101
  Transmission Date: 20060701
  Serious: Yes (Other)
  Sender: FDA-Public Use
  Company Number: DE-BRISTOL-MYERS SQUIBB COMPANY-13310321

PATIENT
  Age: 43 Year
  Sex: Male
  Weight: 78 kg

DRUGS (6)
  1. ZERIT [Suspect]
     Indication: HIV INFECTION
     Dates: start: 19970701, end: 20000301
  2. VIDEX [Suspect]
     Indication: HIV INFECTION
     Dates: start: 19970701, end: 20000301
  3. NEVIRAPINE [Concomitant]
     Indication: HIV INFECTION
     Dates: start: 19970701, end: 20000301
  4. ZIDOVUDINE [Concomitant]
     Indication: HIV INFECTION
     Dates: start: 19960701, end: 20020801
  5. LAMIVUDINE [Concomitant]
     Indication: HIV INFECTION
     Dates: start: 19960701, end: 20020801
  6. ABACAVIR [Concomitant]
     Indication: HIV INFECTION
     Dates: start: 20020601, end: 20020801

REACTIONS (14)
  - AIDS ENCEPHALOPATHY [None]
  - CLUMSINESS [None]
  - DECREASED APPETITE [None]
  - DEPRESSION [None]
  - DIARRHOEA [None]
  - DISTURBANCE IN ATTENTION [None]
  - EMPHYSEMA [None]
  - FOLLICULITIS [None]
  - HYPERTRIGLYCERIDAEMIA [None]
  - LOSS OF LIBIDO [None]
  - LYMPHADENOPATHY [None]
  - POLYNEUROPATHY [None]
  - SLEEP DISORDER [None]
  - TREMOR [None]
